FAERS Safety Report 20392473 (Version 2)
Quarter: 2022Q2

REPORT INFORMATION
  Report Type: Report from Study
  Country: US (occurrence: US)
  Receive Date: 20220128
  Receipt Date: 20220413
  Transmission Date: 20220721
  Serious: Yes (Hospitalization)
  Sender: FDA-Public Use
  Company Number: US-EXELIXIS-CABO-22048419

PATIENT
  Sex: Female
  Weight: 84.8 kg

DRUGS (13)
  1. CABOMETYX [Suspect]
     Active Substance: CABOZANTINIB S-MALATE
     Indication: Renal cell carcinoma
     Dosage: 20 MG, 1 TABLET (20 MG) ALTERNATING WITH 2 TABLETS (40 MG) EVERY OTHER DAY
     Route: 048
     Dates: start: 20210415
  2. CABOMETYX [Suspect]
     Active Substance: CABOZANTINIB S-MALATE
     Dosage: 20 MG, 1 TABLET (20 MG) ALTERNATING WITH 2 TABLETS (40 MG) EVERY OTHER DAY
     Route: 048
  3. OPDIVO [Suspect]
     Active Substance: NIVOLUMAB
     Indication: Renal cell carcinoma
     Dosage: UNK
  4. ADVAIR HFA [Concomitant]
     Active Substance: FLUTICASONE PROPIONATE\SALMETEROL XINAFOATE
  5. ALBUTEROL SULFATE [Concomitant]
     Active Substance: ALBUTEROL SULFATE
  6. AQUAPHOR [Concomitant]
     Active Substance: PETROLATUM
  7. ASPIRIN [Concomitant]
     Active Substance: ASPIRIN
  8. CLOBETASOL [Concomitant]
     Active Substance: CLOBETASOL
  9. FAMOTIDINE [Concomitant]
     Active Substance: FAMOTIDINE
  10. SYNTHROID [Concomitant]
     Active Substance: LEVOTHYROXINE SODIUM
  11. VITAMIN B12 [Concomitant]
     Active Substance: CYANOCOBALAMIN
  12. VITAMIN C [Concomitant]
     Active Substance: ASCORBIC ACID
  13. VITAMIN D3 [Concomitant]
     Active Substance: CHOLECALCIFEROL

REACTIONS (3)
  - Illness [Recovering/Resolving]
  - Ileal perforation [Unknown]
  - Gastrooesophageal reflux disease [Unknown]
